FAERS Safety Report 5205877-8 (Version None)
Quarter: 2007Q1

REPORT INFORMATION
  Report Type: 
  Country: None (occurrence: None)
  Receive Date: 20070111
  Receipt Date: 20070104
  Transmission Date: 20070707
  Serious: Yes (Other)
  Sender: FDA-Public Use
  Company Number: 2007UW00277

PATIENT
  Age: 39 Year
  Sex: Male

DRUGS (1)
  1. SEROQUEL [Suspect]
     Route: 048

REACTIONS (2)
  - DYSPHAGIA [None]
  - THROAT TIGHTNESS [None]
